FAERS Safety Report 23783658 (Version 1)
Quarter: 2024Q2

REPORT INFORMATION
  Report Type: Spontaneous
  Country: US (occurrence: None)
  Receive Date: 20240424
  Receipt Date: 20240424
  Transmission Date: 20240715
  Serious: No
  Sender: FDA-Public Use
  Company Number: None

PATIENT
  Age: 66 Year
  Sex: Female
  Weight: 78.8 kg

DRUGS (1)
  1. NIVOLUMAB [Suspect]
     Active Substance: NIVOLUMAB
     Indication: Non-small cell lung cancer
     Dosage: OTHER FREQUENCY : EVERY 21 DAYS;?
     Route: 041
     Dates: start: 20240424, end: 20240424

REACTIONS (6)
  - Oxygen saturation decreased [None]
  - Dyspnoea [None]
  - Unresponsive to stimuli [None]
  - Rash macular [None]
  - Scratch [None]
  - Cyanosis [None]

NARRATIVE: CASE EVENT DATE: 20240424
